FAERS Safety Report 23809189 (Version 1)
Quarter: 2024Q2

REPORT INFORMATION
  Report Type: Spontaneous
  Country: US (occurrence: US)
  Receive Date: 20240502
  Receipt Date: 20240502
  Transmission Date: 20240716
  Serious: No
  Sender: FDA-Public Use
  Company Number: US-UCBSA-2023012824

PATIENT
  Sex: Female

DRUGS (1)
  1. CIMZIA [Suspect]
     Active Substance: CERTOLIZUMAB PEGOL
     Indication: Greater trochanteric pain syndrome
     Dosage: 200 MILLIGRAM

REACTIONS (3)
  - Insurance issue [Unknown]
  - Pain [Unknown]
  - Therapy interrupted [Unknown]
